FAERS Safety Report 25494220 (Version 1)
Quarter: 2025Q2

REPORT INFORMATION
  Report Type: Spontaneous
  Country: US (occurrence: None)
  Receive Date: 20250627
  Receipt Date: 20250627
  Transmission Date: 20250717
  Serious: Yes (Hospitalization)
  Sender: FDA-CTU
  Company Number: None

PATIENT
  Age: 74 Year
  Sex: Male
  Weight: 103.01 kg

DRUGS (12)
  1. ENVARSUS XR [Suspect]
     Active Substance: TACROLIMUS
     Indication: Renal transplant
     Dosage: 1 MG DAILY ORA
     Route: 048
     Dates: start: 20241112
  2. ENVARSUS XR [Suspect]
     Active Substance: TACROLIMUS
     Indication: Renal transplant
     Dosage: 1.5 MG DAILY ORAL
     Route: 048
     Dates: start: 20241112, end: 20250625
  3. MYCOPHENOLIC ACID [Suspect]
     Active Substance: MYCOPHENOLIC ACID
     Dosage: FREQUENCY : TWICE A DAY;?
  4. VALGANCICLOVIR [Concomitant]
     Active Substance: VALGANCICLOVIR
  5. TAMSULOSIN [Concomitant]
     Active Substance: TAMSULOSIN
  6. FEBUXOSTAT [Concomitant]
     Active Substance: FEBUXOSTAT
  7. BACTRIM [Concomitant]
     Active Substance: SULFAMETHOXAZOLE\TRIMETHOPRIM
  8. ASPIRIN EC LOW DOSE [Concomitant]
  9. AMLODIPINE [Concomitant]
     Active Substance: AMLODIPINE BESYLATE
  10. CARVEDILOL [Concomitant]
     Active Substance: CARVEDILOL
  11. VITAMIN D [Concomitant]
     Active Substance: VITAMIN D NOS
  12. VITAMIN B12 [Concomitant]
     Active Substance: CYANOCOBALAMIN

REACTIONS (3)
  - Cerebrovascular accident [None]
  - Viral infection [None]
  - Therapy interrupted [None]

NARRATIVE: CASE EVENT DATE: 20250609
